FAERS Safety Report 13602508 (Version 1)
Quarter: 2017Q2

REPORT INFORMATION
  Report Type: Spontaneous
  Country: CN (occurrence: CN)
  Receive Date: 20170601
  Receipt Date: 20170601
  Transmission Date: 20170830
  Serious: Yes (Other)
  Sender: FDA-Public Use
  Company Number: CN-PFIZER INC-2017236040

PATIENT
  Age: 47 Year
  Sex: Female
  Weight: 50 kg

DRUGS (7)
  1. PHARMORUBICIN [Suspect]
     Active Substance: EPIRUBICIN
     Indication: PAGET^S DISEASE OF NIPPLE
     Dosage: 10 MG, 1X/DAY
     Route: 041
     Dates: start: 20170201, end: 20170202
  2. CYCLOPHOSPHAMIDE. [Suspect]
     Active Substance: CYCLOPHOSPHAMIDE
     Indication: INVASIVE DUCTAL BREAST CARCINOMA
  3. ONDANSETRON [Concomitant]
     Active Substance: ONDANSETRON
     Indication: PROPHYLAXIS OF NAUSEA AND VOMITING
     Dosage: UNK
     Route: 042
     Dates: start: 20170201
  4. CYCLOPHOSPHAMIDE. [Suspect]
     Active Substance: CYCLOPHOSPHAMIDE
     Indication: PAGET^S DISEASE OF NIPPLE
     Dosage: 0.8 G, 1X/DAY
     Route: 041
     Dates: start: 20170201, end: 20170201
  5. GLUTATHIONE [Concomitant]
     Active Substance: GLUTATHIONE
     Indication: LIVER DISORDER
     Dosage: UNK
     Route: 041
     Dates: start: 20170201
  6. PHARMORUBICIN [Suspect]
     Active Substance: EPIRUBICIN
     Indication: INVASIVE DUCTAL BREAST CARCINOMA
  7. PANTOPRAZOLE [Concomitant]
     Active Substance: PANTOPRAZOLE
     Indication: ABDOMINAL DISCOMFORT
     Dosage: UNK
     Route: 041
     Dates: start: 20170201

REACTIONS (4)
  - Red blood cell count decreased [Recovering/Resolving]
  - Haemoglobin decreased [Recovering/Resolving]
  - Platelet count increased [Recovering/Resolving]
  - White blood cell count decreased [Recovering/Resolving]

NARRATIVE: CASE EVENT DATE: 20170205
